FAERS Safety Report 4505046-0 (Version None)
Quarter: 2004Q4

REPORT INFORMATION
  Report Type: 
  Country: None (occurrence: None)
  Receive Date: 20041117
  Receipt Date: 20041117
  Transmission Date: 20050328
  Serious: Yes (Hospitalization)
  Sender: FDA-Public Use
  Company Number: None

PATIENT
  Age: 62 Year
  Sex: Male

DRUGS (6)
  1. FUROSEMIDE [Suspect]
     Indication: HYPERTENSION
     Dosage: 40 MG BID
     Dates: start: 20040722
  2. METOLAZONE [Suspect]
     Dosage: 2.5 MG BID
     Dates: start: 20040722
  3. ZOCOR [Concomitant]
  4. METOPROLOL [Concomitant]
  5. AVANDIA [Concomitant]
  6. FELODIPINE [Concomitant]

REACTIONS (1)
  - HYPOKALAEMIA [None]
